FAERS Safety Report 11680262 (Version 3)
Quarter: 2015Q4

REPORT INFORMATION
  Report Type: Spontaneous
  Country: US (occurrence: US)
  Receive Date: 20151027
  Receipt Date: 20151110
  Transmission Date: 20160304
  Serious: No
  Sender: FDA-Public Use
  Company Number: US-ELI_LILLY_AND_COMPANY-US201011001529

PATIENT
  Sex: Female

DRUGS (10)
  1. CALCIUM [Concomitant]
     Active Substance: CALCIUM
     Dosage: 2 DF, UNK
  2. FORTEO [Suspect]
     Active Substance: TERIPARATIDE
     Dosage: 20 UG, QD
  3. FORTEO [Suspect]
     Active Substance: TERIPARATIDE
     Dosage: 20 UG, QD
  4. FORTEO [Suspect]
     Active Substance: TERIPARATIDE
     Indication: OSTEOPOROSIS
     Dosage: 20 UG, QD
     Dates: start: 201007, end: 201010
  5. FORTEO [Suspect]
     Active Substance: TERIPARATIDE
     Dosage: 20 UG, QD
  6. FORTEO [Suspect]
     Active Substance: TERIPARATIDE
     Dosage: 20 UG, QD
     Dates: start: 20101103
  7. CALCIUM [Concomitant]
     Active Substance: CALCIUM
     Dosage: 1 DF, UNK
  8. CALCIUM [Concomitant]
     Active Substance: CALCIUM
     Dosage: 2 DF, UNK
  9. FORTEO [Suspect]
     Active Substance: TERIPARATIDE
     Dosage: 20 UG, QD
  10. FORTEO [Suspect]
     Active Substance: TERIPARATIDE
     Dosage: 20 UG, QD

REACTIONS (11)
  - Hyperaesthesia [Unknown]
  - Injection site haemorrhage [Unknown]
  - Fatigue [Not Recovered/Not Resolved]
  - Urticaria [Unknown]
  - Constipation [Not Recovered/Not Resolved]
  - Muscle spasms [Unknown]
  - Pain in extremity [Unknown]
  - Drug dose omission [Recovered/Resolved]
  - Injection site swelling [Unknown]
  - Arthralgia [Unknown]
  - Injection site bruising [Recovered/Resolved]
